FAERS Safety Report 7994765-X (Version None)
Quarter: 2011Q4

REPORT INFORMATION
  Report Type: 
  Country: None (occurrence: None)
  Receive Date: 20111220
  Receipt Date: 20111215
  Transmission Date: 20120403
  Serious: Yes (Hospitalization, Other)
  Sender: FDA-Public Use
  Company Number: DE-PFIZER INC-2011305081

PATIENT
  Age: 80 Year

DRUGS (1)
  1. NORVASC [Suspect]
     Dosage: 5MG X 50 TABLETS

REACTIONS (3)
  - PNEUMONIA [None]
  - SUICIDE ATTEMPT [None]
  - INTENTIONAL OVERDOSE [None]
